FAERS Safety Report 15340455 (Version 2)
Quarter: 2018Q3

REPORT INFORMATION
  Report Type: Spontaneous
  Country: BE (occurrence: BE)
  Receive Date: 20180831
  Receipt Date: 20180907
  Transmission Date: 20181010
  Serious: Yes (Other)
  Sender: FDA-Public Use
  Company Number: PHHY2017BE188413

PATIENT
  Age: 70 Year
  Sex: Female
  Weight: 61.5 kg

DRUGS (9)
  1. AVASTIN [Suspect]
     Active Substance: BEVACIZUMAB
     Indication: OVARIAN CANCER
     Dosage: 960 MG, Q3W
     Route: 042
     Dates: start: 20171102
  2. AVASTIN [Suspect]
     Active Substance: BEVACIZUMAB
     Dosage: 1027 MG, TIW
     Route: 042
     Dates: start: 20180712
  3. DAFALGAN [Concomitant]
     Active Substance: ACETAMINOPHEN
     Indication: PRODUCT USED FOR UNKNOWN INDICATION
     Dosage: 1 UNK, UNK (AS NEEDED)
     Route: 065
     Dates: start: 20180131
  4. PACLITAXEL. [Suspect]
     Active Substance: PACLITAXEL
     Indication: OVARIAN CANCER
     Dosage: 132 MG/M2, QW
     Route: 042
     Dates: start: 20171102
  5. VOLTAREN [Concomitant]
     Active Substance: DICLOFENAC SODIUM
     Indication: PRODUCT USED FOR UNKNOWN INDICATION
     Dosage: 50 MG, QD
     Route: 048
     Dates: start: 20171109
  6. CARBOPLATIN. [Suspect]
     Active Substance: CARBOPLATIN
     Indication: OVARIAN CANCER
     Dosage: 1 OT, QMO (DOSE: 6 AUC)
     Route: 042
     Dates: start: 20171102
  7. AVASTIN [Suspect]
     Active Substance: BEVACIZUMAB
     Dosage: 975 MG, UNK
     Route: 042
  8. PACLITAXEL. [Suspect]
     Active Substance: PACLITAXEL
     Dosage: 133.6 MG/M2, QW
     Route: 042
     Dates: start: 20171123
  9. BEFACT FORTE [Concomitant]
     Indication: PRODUCT USED FOR UNKNOWN INDICATION
     Dosage: UNK
     Route: 065

REACTIONS (12)
  - Chest pain [Not Recovered/Not Resolved]
  - Anorectal discomfort [Unknown]
  - Aphthous ulcer [Recovered/Resolved]
  - Hypertension [Unknown]
  - Oedema peripheral [Recovered/Resolved]
  - Anal pruritus [Recovered/Resolved]
  - Neuropathy peripheral [Not Recovered/Not Resolved]
  - Suspected transmission of an infectious agent via product [Unknown]
  - Fatigue [Recovered/Resolved]
  - Ecchymosis [Recovered/Resolved]
  - Fall [Unknown]
  - Back pain [Not Recovered/Not Resolved]

NARRATIVE: CASE EVENT DATE: 20171102
